FAERS Safety Report 6348250-1 (Version None)
Quarter: 2009Q3

REPORT INFORMATION
  Report Type: 
  Country: None (occurrence: None)
  Receive Date: 20090908
  Receipt Date: 20090826
  Transmission Date: 20100115
  Serious: Yes (Hospitalization)
  Sender: FDA-Public Use
  Company Number: 230260J08CAN

PATIENT
  Age: 33 Year
  Sex: Female

DRUGS (4)
  1. REBIF [Suspect]
     Indication: MULTIPLE SCLEROSIS
     Dosage: 44 MCG, 3 IN 1 WEEKS
     Dates: start: 20080215, end: 20090406
  2. REBIF [Suspect]
     Indication: RELAPSING-REMITTING MULTIPLE SCLEROSIS
     Dosage: 44 MCG, 3 IN 1 WEEKS
     Dates: start: 20080215, end: 20090406
  3. COTYLENOL [Concomitant]
  4. LUPRON [Concomitant]

REACTIONS (4)
  - APPENDICITIS PERFORATED [None]
  - FATIGUE [None]
  - INJECTION SITE PAIN [None]
  - MYALGIA [None]
